FAERS Safety Report 5280081-6 (Version None)
Quarter: 2007Q1

REPORT INFORMATION
  Report Type: 
  Country: None (occurrence: None)
  Receive Date: 20070329
  Receipt Date: 20070320
  Transmission Date: 20070707
  Serious: Yes (Other)
  Sender: FDA-Public Use
  Company Number: US-BAYER-200710873BCC

PATIENT
  Age: 67 Year
  Sex: Male
  Weight: 68 kg

DRUGS (2)
  1. ORIGINAL ALKA SELTZER TABLETS [Suspect]
     Indication: DYSPEPSIA
     Route: 048
     Dates: start: 20050101
  2. STORE BRAND MULTIVITAMINS [Concomitant]

REACTIONS (2)
  - DEPENDENCE [None]
  - DRUG DEPENDENCE [None]
